FAERS Safety Report 15854008 (Version 1)
Quarter: 2019Q1

REPORT INFORMATION
  Report Type: Spontaneous
  Country: US (occurrence: US)
  Receive Date: 20190121
  Receipt Date: 20190121
  Transmission Date: 20190417
  Serious: Yes (Disabling)
  Sender: FDA-Public Use
  Company Number: None

PATIENT
  Age: 33 Year
  Sex: Female
  Weight: 84.15 kg

DRUGS (4)
  1. VITAMIN D [Concomitant]
     Active Substance: CHOLECALCIFEROL
  2. DULOXETINE HCL [Suspect]
     Active Substance: DULOXETINE HYDROCHLORIDE
     Indication: PAIN
     Dosage: ?          QUANTITY:30 CAPSULE(S);?
     Route: 048
  3. DULOXETINE HCL [Suspect]
     Active Substance: DULOXETINE HYDROCHLORIDE
     Indication: DEPRESSION
     Dosage: ?          QUANTITY:30 CAPSULE(S);?
     Route: 048
  4. DULOXETINE. [Concomitant]
     Active Substance: DULOXETINE

REACTIONS (12)
  - Dizziness [None]
  - Headache [None]
  - Nausea [None]
  - Withdrawal syndrome [None]
  - Fatigue [None]
  - Migraine [None]
  - Depression [None]
  - Anxiety [None]
  - Hot flush [None]
  - Vomiting [None]
  - Suicidal ideation [None]
  - Agitation [None]

NARRATIVE: CASE EVENT DATE: 20181218
